FAERS Safety Report 10091023 (Version 1)
Quarter: 2014Q2

REPORT INFORMATION
  Report Type: Spontaneous
  Country: US (occurrence: US)
  Receive Date: 20140421
  Receipt Date: 20140421
  Transmission Date: 20141212
  Serious: Yes (Other)
  Sender: FDA-Public Use
  Company Number: US-TEVA-476827USA

PATIENT
  Age: 29 Year
  Sex: Female
  Weight: 99.88 kg

DRUGS (3)
  1. PARAGARD 380A [Suspect]
     Indication: CONTRACEPTION
     Route: 015
     Dates: start: 20140225, end: 20140416
  2. PARAGARD 380A [Suspect]
     Route: 015
     Dates: start: 20140416
  3. PRENATAL VITAMINS [Concomitant]
     Indication: SUPPLEMENTATION THERAPY

REACTIONS (6)
  - Device dislocation [Recovered/Resolved]
  - Chest pain [Recovered/Resolved]
  - Nausea [Unknown]
  - Muscle spasms [Unknown]
  - Abdominal pain [Recovered/Resolved]
  - Abdominal pain upper [Recovered/Resolved]
